FAERS Safety Report 23474993 (Version 1)
Quarter: 2024Q1

REPORT INFORMATION
  Report Type: Report from Study
  Country: US (occurrence: US)
  Receive Date: 20240204
  Receipt Date: 20240204
  Transmission Date: 20240409
  Serious: Yes (Hospitalization)
  Sender: FDA-Public Use
  Company Number: US-EXELIXIS-CABO-23069552

PATIENT
  Age: 79 Year
  Sex: Male

DRUGS (2)
  1. CABOMETYX [Suspect]
     Active Substance: CABOZANTINIB S-MALATE
     Indication: Renal cell carcinoma
     Dosage: 40 MG, QD
     Route: 048
     Dates: start: 20231007
  2. CABOMETYX [Suspect]
     Active Substance: CABOZANTINIB S-MALATE
     Dosage: 40 MG (12 DAYS ON AND 2 DAYS OFF)
     Route: 048

REACTIONS (14)
  - Diarrhoea [Not Recovered/Not Resolved]
  - Kidney infection [Unknown]
  - Taste disorder [Unknown]
  - Fatigue [Unknown]
  - Headache [Unknown]
  - Decreased appetite [Unknown]
  - Weight decreased [Unknown]
  - Stomatitis [Unknown]
  - Musculoskeletal discomfort [Unknown]
  - Eructation [Unknown]
  - Prostatomegaly [Unknown]
  - Feeding disorder [Unknown]
  - Inappropriate schedule of product administration [Unknown]
  - Product prescribing issue [Unknown]

NARRATIVE: CASE EVENT DATE: 20231001
